FAERS Safety Report 9219324 (Version 2)
Quarter: 2013Q3

REPORT INFORMATION
  Report Type: Spontaneous
  Country: FR (occurrence: FR)
  Receive Date: 20130409
  Receipt Date: 20130726
  Transmission Date: 20140515
  Serious: Yes (Other)
  Sender: FDA-Public Use
  Company Number: FR-PFIZER INC-2013108139

PATIENT
  Age: 32 Year
  Sex: Female

DRUGS (4)
  1. LYRICA [Suspect]
     Dosage: 400 MG DAILY IN 2 INTAKES
     Route: 048
  2. ACTISKENAN [Suspect]
     Dosage: UNK
     Route: 048
  3. ACTISKENAN [Suspect]
     Dosage: 7 TABLETS, SINGLE
  4. TOPALGIC [Concomitant]
     Dosage: 200 MG DAILY IN 2 INTAKES
     Route: 048

REACTIONS (1)
  - Suicide attempt [Unknown]
